FAERS Safety Report 23497932 (Version 1)
Quarter: 2024Q1

REPORT INFORMATION
  Report Type: Spontaneous
  Country: US (occurrence: None)
  Receive Date: 20240207
  Receipt Date: 20240207
  Transmission Date: 20240410
  Serious: No
  Sender: FDA-Public Use
  Company Number: US-ROCHE-3312646

PATIENT
  Sex: Male

DRUGS (1)
  1. XOLAIR [Suspect]
     Active Substance: OMALIZUMAB
     Indication: Idiopathic urticaria
     Dosage: FORMULATION: VIAL
     Route: 058
     Dates: start: 20201012

REACTIONS (6)
  - Product complaint [Unknown]
  - Incorrect dose administered [Unknown]
  - Product preparation error [Unknown]
  - Product prescribing error [Unknown]
  - Product dose omission issue [Unknown]
  - Urticaria [Not Recovered/Not Resolved]

NARRATIVE: CASE EVENT DATE: 20230128
